FAERS Safety Report 8469824-8 (Version None)
Quarter: 2012Q2

REPORT INFORMATION
  Report Type: 
  Country: None (occurrence: None)
  Receive Date: 20120626
  Receipt Date: 20120612
  Transmission Date: 20120825
  Serious: Yes (Other)
  Sender: FDA-Public Use
  Company Number: CHPA2012US012748

PATIENT
  Age: 58 Year
  Sex: Male

DRUGS (4)
  1. ALLEGRA [Concomitant]
     Dosage: UNK, UNK
  2. ZYRTEC [Concomitant]
     Dosage: UNK, UNK
  3. EXCEDRIN (MIGRAINE) [Suspect]
     Indication: MIGRAINE
     Dosage: 2 DF, 2 TO 4 TIMES A MONTH
     Route: 048
  4. DRUG THERAPY NOS [Concomitant]
     Dosage: UNK, UNK

REACTIONS (1)
  - ANXIETY [None]
